FAERS Safety Report 5844381-0 (Version None)
Quarter: 2008Q3

REPORT INFORMATION
  Report Type: 
  Country: None (occurrence: None)
  Receive Date: 20080813
  Receipt Date: 20080812
  Transmission Date: 20090109
  Serious: Yes (Other)
  Sender: FDA-Public Use
  Company Number: US-GENENTECH-265933

PATIENT
  Sex: Female

DRUGS (7)
  1. HERCEPTIN [Suspect]
     Indication: BREAST CANCER
     Dosage: 336 MG, Q3W
     Route: 042
     Dates: start: 20080110, end: 20080807
  2. ALOXI [Suspect]
     Indication: PREMEDICATION
     Dosage: UNK
     Dates: start: 20080101
  3. BENADRYL [Concomitant]
     Indication: PREMEDICATION
  4. TYLENOL [Concomitant]
     Indication: PREMEDICATION
  5. GEMZAR [Concomitant]
     Indication: DRUG USE FOR UNKNOWN INDICATION
     Dosage: UNK
     Dates: start: 20080110
  6. LAPATINIB [Concomitant]
     Indication: DRUG USE FOR UNKNOWN INDICATION
  7. KYTRIL [Concomitant]
     Indication: PREMEDICATION

REACTIONS (3)
  - BRAIN OEDEMA [None]
  - CONVULSION [None]
  - DRUG INEFFECTIVE [None]
